FAERS Safety Report 22394164 (Version 1)
Quarter: 2023Q2

REPORT INFORMATION
  Report Type: Spontaneous
  Country: CN (occurrence: CN)
  Receive Date: 20230601
  Receipt Date: 20230601
  Transmission Date: 20230722
  Serious: Yes (Hospitalization, Other)
  Sender: FDA-Public Use
  Company Number: None

PATIENT
  Age: 49 Year
  Sex: Female
  Weight: 51 kg

DRUGS (22)
  1. CYCLOPHOSPHAMIDE [Suspect]
     Active Substance: CYCLOPHOSPHAMIDE
     Indication: Plasma cell myeloma
     Dosage: UNK, CYCLE 1, AS PART OF DT-PACE REGIMEN
     Route: 065
  2. CYCLOPHOSPHAMIDE [Suspect]
     Active Substance: CYCLOPHOSPHAMIDE
     Indication: Plasma cell myeloma refractory
     Dosage: UNK, CYCLE 2, AS PART OF DT-PACE REGIMEN
     Route: 065
     Dates: start: 20230323
  3. CYCLOPHOSPHAMIDE [Suspect]
     Active Substance: CYCLOPHOSPHAMIDE
     Indication: Chemotherapy
     Dosage: 0.57 G QD, DILUTED WITH 500 ML OF SODIUM CHLORIDE,  CYCLE 3 AS PART OF DT-PACE REGIMEN
     Route: 041
     Dates: start: 20230403, end: 20230406
  4. SODIUM CHLORIDE [Suspect]
     Active Substance: SODIUM CHLORIDE
     Indication: Medication dilution
     Dosage: 500 ML QD, USED TO DILUTE 14.3 MG OF CISPLATIN
     Route: 041
     Dates: start: 20230403, end: 20230406
  5. SODIUM CHLORIDE [Suspect]
     Active Substance: SODIUM CHLORIDE
     Dosage: 500 ML QD, USED TO DILUTE 2.9 ML OF ETOPOSIDE
     Route: 041
     Dates: start: 20230403, end: 20230406
  6. ETOPOSIDE [Suspect]
     Active Substance: ETOPOSIDE
     Indication: Plasma cell myeloma
     Dosage: UNK. CYCLE 1 AS PART OF D-PACE REGIMEN
     Route: 065
  7. ETOPOSIDE [Suspect]
     Active Substance: ETOPOSIDE
     Indication: Plasma cell myeloma refractory
     Dosage: UNK, CYCLE 2, AS PART OF DT-PACE
     Route: 065
     Dates: start: 20230323
  8. ETOPOSIDE [Suspect]
     Active Substance: ETOPOSIDE
     Indication: Chemotherapy
     Dosage: 2.9 ML QD, DILUTED WITH 500 ML OF SODIUM CHLORIDE, CYCLE 3, AS PART OF DT-PACE REGIMEN
     Route: 041
     Dates: start: 20230403, end: 20230406
  9. DOXORUBICIN HYDROCHLORIDE [Suspect]
     Active Substance: DOXORUBICIN HYDROCHLORIDE
     Indication: Plasma cell myeloma
     Dosage: UNK, CYCLE 1, AS PART OF DT-PACE REGIMEN
     Route: 065
  10. DOXORUBICIN HYDROCHLORIDE [Suspect]
     Active Substance: DOXORUBICIN HYDROCHLORIDE
     Indication: Plasma cell myeloma refractory
     Dosage: UNK, CYCLE 2, AS PART OF DT-PACE REGIMEN
     Route: 065
     Dates: start: 20230323
  11. DOXORUBICIN HYDROCHLORIDE [Suspect]
     Active Substance: DOXORUBICIN HYDROCHLORIDE
     Indication: Chemotherapy
     Dosage: 14.3 MG QD, DILUTED WITH 250 ML OF GLUCOSE, CYCLE 3, AS PART OF DT-PACE REGIMEN
     Route: 041
     Dates: start: 20230403, end: 20230406
  12. CISPLATIN [Suspect]
     Active Substance: CISPLATIN
     Indication: Plasma cell myeloma
     Dosage: UNK, CYCLE 1, AS PART OF DT-PACE REGIMEN
     Route: 065
  13. CISPLATIN [Suspect]
     Active Substance: CISPLATIN
     Indication: Plasma cell myeloma refractory
     Dosage: UNK, CYCLE 2, AS PART OF DT-PACE REGIMEN
     Route: 065
     Dates: start: 20230323
  14. CISPLATIN [Suspect]
     Active Substance: CISPLATIN
     Indication: Chemotherapy
     Dosage: 14.3 MG QD, DILUTED WITH 500 ML OF SODIUM CHLORIDE, 2 CYCLES OF DT-PACE REGIMEN CHEMOTHERAPY
     Route: 041
     Dates: start: 20230403, end: 20230406
  15. DEXAMETHASONE [Suspect]
     Active Substance: DEXAMETHASONE
     Indication: Plasma cell myeloma
     Dosage: UNK, CYCLE 1, AS PART OF DT-PACE REGIMEN
     Route: 065
  16. DEXAMETHASONE [Suspect]
     Active Substance: DEXAMETHASONE
     Indication: Plasma cell myeloma refractory
     Dosage: UNK, CYCLE 2, AS PART OF DT-PACE REGIMEN
     Route: 065
     Dates: start: 20230323
  17. DEXAMETHASONE [Suspect]
     Active Substance: DEXAMETHASONE
     Indication: Chemotherapy
     Dosage: UNK, CYCLE 3, AS PART OF DT-PACE REGIMEN
     Route: 065
     Dates: start: 20230403
  18. THALIDOMIDE [Suspect]
     Active Substance: THALIDOMIDE
     Indication: Plasma cell myeloma
     Dosage: UNK, CYCLE 1, AS PART OF DT-PACE REGIMEN
     Route: 065
  19. THALIDOMIDE [Suspect]
     Active Substance: THALIDOMIDE
     Indication: Plasma cell myeloma refractory
     Dosage: UNK, CYCLE 2, AS PART OF DT-PACE REGIMEN
     Route: 065
     Dates: start: 20230323
  20. THALIDOMIDE [Suspect]
     Active Substance: THALIDOMIDE
     Indication: Chemotherapy
     Dosage: UNK, CYCLE 3, AS PART OF DT-PACE REGIMEN
     Route: 065
  21. SODIUM CHLORIDE [Suspect]
     Active Substance: SODIUM CHLORIDE
     Indication: Medication dilution
     Dosage: 500 ML QD, USED TO DILUTE 0.57 G OF CYCLOPHOSPHAMIDE
     Route: 041
     Dates: start: 20230403, end: 20230406
  22. DEXTROSE [Suspect]
     Active Substance: DEXTROSE\DEXTROSE MONOHYDRATE
     Indication: Medication dilution
     Dosage: 250 ML QD, USED TO DILUTE 14.3 MG OF DOXORUBICIN HYDROCHLORIDE
     Route: 041
     Dates: start: 20230403, end: 20230406

REACTIONS (3)
  - Pancytopenia [Recovering/Resolving]
  - Full blood count decreased [Recovering/Resolving]
  - Condition aggravated [Recovering/Resolving]

NARRATIVE: CASE EVENT DATE: 20230410
